FAERS Safety Report 23272247 (Version 1)
Quarter: 2023Q4

REPORT INFORMATION
  Report Type: Spontaneous
  Country: US (occurrence: None)
  Receive Date: 20231206
  Receipt Date: 20231206
  Transmission Date: 20240110
  Serious: Yes (Other)
  Sender: FDA-Public Use
  Company Number: None

PATIENT
  Age: 48 Year
  Sex: Female
  Weight: 135 kg

DRUGS (10)
  1. RITUXAN [Suspect]
     Active Substance: RITUXIMAB
     Indication: Dermatomyositis
     Dosage: 1000 MG Q6MONTHS INTRAVENOUS?
     Route: 042
  2. SULFAMETHOXAZOLE\TRIMETHOPRIM [Concomitant]
     Active Substance: SULFAMETHOXAZOLE\TRIMETHOPRIM
  3. cyclosporine ophthalmic [Concomitant]
  4. PREDNISONE [Concomitant]
     Active Substance: PREDNISONE
  5. PANTOPRAZOLE SODIUM [Concomitant]
  6. IRON [Concomitant]
     Active Substance: IRON
  7. HYDROXYCHLOROQUINE SULFATE [Concomitant]
  8. AZATHIOPRINE [Concomitant]
  9. ALENDRONATE SODIUM [Concomitant]
     Active Substance: ALENDRONATE SODIUM
  10. ALBUTEROL SULFATE [Concomitant]

REACTIONS (4)
  - Use of accessory respiratory muscles [None]
  - Hyperhidrosis [None]
  - Dyspnoea [None]
  - Infusion related reaction [None]

NARRATIVE: CASE EVENT DATE: 20231206
